FAERS Safety Report 9263557 (Version 3)
Quarter: 2013Q3

REPORT INFORMATION
  Report Type: Spontaneous
  Country: US (occurrence: US)
  Receive Date: 20130430
  Receipt Date: 20130723
  Transmission Date: 20140515
  Serious: Yes (Hospitalization, Other)
  Sender: FDA-Public Use
  Company Number: US-PFIZER INC-2013132458

PATIENT
  Age: 46 Year
  Sex: Male
  Weight: 107 kg

DRUGS (2)
  1. NORVASC [Suspect]
     Indication: HYPERTENSION
     Dosage: 10 MG, 1X/DAY
  2. ALLOPURINOL [Concomitant]
     Indication: GOUT
     Dosage: 300 MG, 1X/DAY

REACTIONS (5)
  - Coronary artery occlusion [Unknown]
  - Myocardial infarction [Unknown]
  - Blood pressure inadequately controlled [Unknown]
  - Back pain [Unknown]
  - Blood cholesterol abnormal [Unknown]
